FAERS Safety Report 8126629-5 (Version None)
Quarter: 2012Q1

REPORT INFORMATION
  Report Type: 
  Country: None (occurrence: None)
  Receive Date: 20120210
  Receipt Date: 20120131
  Transmission Date: 20120608
  Serious: No
  Sender: FDA-Public Use
  Company Number: US-BIOGENIDEC-2011BI044740

PATIENT
  Age: 53 Year
  Sex: Female

DRUGS (1)
  1. TYSABRI [Suspect]
     Indication: MULTIPLE SCLEROSIS
     Route: 042
     Dates: start: 20111012

REACTIONS (8)
  - ANGINA PECTORIS [None]
  - NAUSEA [None]
  - HYPOAESTHESIA [None]
  - PNEUMONIA [None]
  - DYSPEPSIA [None]
  - DIZZINESS [None]
  - HIATUS HERNIA [None]
  - HYPOTENSION [None]
